FAERS Safety Report 18724448 (Version 1)
Quarter: 2021Q1

REPORT INFORMATION
  Report Type: Spontaneous
  Country: US (occurrence: US)
  Receive Date: 20210111
  Receipt Date: 20210111
  Transmission Date: 20210419
  Serious: Yes (Other)
  Sender: FDA-Public Use
  Company Number: None

PATIENT
  Age: 42 Year
  Sex: Male

DRUGS (1)
  1. BUPROPION (BUPROPION HCL 300MG 24HR TAB, SA) [Suspect]
     Active Substance: BUPROPION HYDROCHLORIDE
     Dosage: ?          OTHER FREQUENCY:AM;?
     Route: 048
     Dates: start: 20191114, end: 20200402

REACTIONS (1)
  - Seizure [None]

NARRATIVE: CASE EVENT DATE: 20200422
